FAERS Safety Report 4811307-8 (Version None)
Quarter: 2005Q4

REPORT INFORMATION
  Report Type: 
  Country: None (occurrence: None)
  Receive Date: 20051026
  Receipt Date: 20051026
  Transmission Date: 20060501
  Serious: Yes (Death, Life-Threatening, Hospitalization)
  Sender: FDA-Public Use
  Company Number: None

PATIENT
  Age: 76 Year
  Sex: Male

DRUGS (12)
  1. WARFARIN [Suspect]
     Indication: DEEP VEIN THROMBOSIS
     Dosage: 5MG PO QHS, EXC 2.5 SAT
     Route: 048
     Dates: start: 20030220, end: 20050918
  2. BACTRIM [Suspect]
     Indication: CELLULITIS
     Dosage: 160/80  1 PO BID
     Route: 048
     Dates: start: 20050916, end: 20050918
  3. ASPIRIN [Concomitant]
  4. ATENOLOL [Concomitant]
  5. CLONIDINE HCL [Concomitant]
  6. DOCUSATE NA [Concomitant]
  7. ENALAPRIL MALEATE [Concomitant]
  8. FELODIPINE [Concomitant]
  9. FERROUS SULFATE TAB [Concomitant]
  10. FUROSEMIDE [Concomitant]
  11. GLYBURIDE [Concomitant]
  12. ISOSORBIDE DINITRATE [Concomitant]

REACTIONS (5)
  - CARDIO-RESPIRATORY ARREST [None]
  - CELLULITIS [None]
  - DEEP VEIN THROMBOSIS [None]
  - LOSS OF CONSCIOUSNESS [None]
  - PULSE ABSENT [None]
